FAERS Safety Report 4305358-X (Version None)
Quarter: 2004Q1

REPORT INFORMATION
  Report Type: 
  Country: None (occurrence: None)
  Receive Date: 20040226
  Receipt Date: 20030731
  Transmission Date: 20041129
  Serious: Yes (Other)
  Sender: FDA-Public Use
  Company Number: US-BRISTOL-MYERS SQUIBB COMPANY-12341939

PATIENT
  Age: 55 Year
  Sex: Female

DRUGS (11)
  1. CARBOPLATIN [Suspect]
     Indication: LUNG NEOPLASM MALIGNANT
     Dosage: 3D69288, EXPIRATION DATE: OCT-2005  AUC 2
     Route: 042
     Dates: start: 20030723, end: 20030723
  2. TAXOL [Suspect]
     Indication: LUNG NEOPLASM MALIGNANT
     Dosage: 90 MG
     Route: 042
     Dates: start: 20030723, end: 20030723
  3. PROCRIT [Concomitant]
     Dosage: UNITS
  4. CIMETIDINE HCL [Concomitant]
     Indication: PREMEDICATION
     Route: 042
  5. KYTRIL [Concomitant]
     Indication: PREMEDICATION
     Route: 042
  6. DECADRON [Concomitant]
     Indication: PREMEDICATION
     Route: 042
  7. BENADRYL [Concomitant]
     Indication: PREMEDICATION
     Route: 042
  8. COMPAZINE [Concomitant]
  9. ZOFRAN [Concomitant]
  10. LIDOCAINE HCL VISCOUS [Concomitant]
  11. RADIATION THERAPY [Concomitant]

REACTIONS (1)
  - HYPERSENSITIVITY [None]
